FAERS Safety Report 17172014 (Version 2)
Quarter: 2020Q1

REPORT INFORMATION
  Report Type: Spontaneous
  Country: GB (occurrence: GB)
  Receive Date: 20191219
  Receipt Date: 20200309
  Transmission Date: 20200409
  Serious: Yes (Other)
  Sender: FDA-Public Use
  Company Number: NVSC2019GB071354

PATIENT
  Sex: Female

DRUGS (1)
  1. ENTRESTO [Suspect]
     Active Substance: SACUBITRIL\VALSARTAN
     Indication: CARDIAC FAILURE
     Dosage: 50 OT, UNKNOWN (24/26) FOR THE LAST 4 MONTHS
     Route: 065

REACTIONS (2)
  - Weight increased [Unknown]
  - Type 2 diabetes mellitus [Unknown]
